FAERS Safety Report 10151385 (Version 3)
Quarter: 2014Q2

REPORT INFORMATION
  Report Type: Report from Study
  Country: JP (occurrence: JP)
  Receive Date: 20140502
  Receipt Date: 20140514
  Transmission Date: 20141212
  Serious: Yes (Life-Threatening, Disabling)
  Sender: FDA-Public Use
  Company Number: JP-ABBVIE-01P-087-0114485-00

PATIENT
  Age: 22 Year
  Sex: Male
  Weight: 59.5 kg

DRUGS (34)
  1. KALETRA SOFT GELATIN CAPSULES [Suspect]
     Indication: HIV INFECTION
     Route: 048
     Dates: end: 20040424
  2. NORVIR SOFT GELATIN CAPSULES [Suspect]
     Indication: HIV INFECTION
     Route: 048
     Dates: start: 20050425, end: 20080919
  3. NORVIR SOFT GELATIN CAPSULES [Suspect]
     Route: 048
     Dates: start: 20080920, end: 20110617
  4. NORVIR SOFT GELATIN CAPSULES [Suspect]
     Route: 048
     Dates: start: 19991101, end: 20001224
  5. NORVIR TABLETS [Suspect]
     Indication: HIV INFECTION
     Route: 048
  6. NORVIR TABLETS [Suspect]
     Route: 048
     Dates: start: 20110618
  7. ABACAVIR SULFATE [Suspect]
     Indication: HIV INFECTION
     Route: 048
     Dates: start: 20000724, end: 20000725
  8. ABACAVIR SULFATE [Suspect]
     Route: 048
     Dates: start: 20011020, end: 20011027
  9. INDINAVIR [Suspect]
     Indication: HIV INFECTION
     Route: 048
     Dates: start: 20000318, end: 20000524
  10. STOCRIN [Suspect]
     Indication: HIV INFECTION
     Route: 048
     Dates: start: 20000724, end: 20000725
  11. STOCRIN [Suspect]
     Dosage: DIVIDED DOSE
     Route: 048
     Dates: start: 20000925, end: 20001002
  12. STAVUDINE [Suspect]
     Indication: HIV INFECTION
     Route: 048
     Dates: start: 19970825, end: 19980227
  13. STAVUDINE [Suspect]
     Route: 048
     Dates: start: 19980227, end: 19980803
  14. STAVUDINE [Suspect]
     Route: 048
     Dates: start: 19980803, end: 19981109
  15. STAVUDINE [Suspect]
     Route: 048
     Dates: start: 19981109, end: 19990619
  16. STAVUDINE [Suspect]
     Route: 048
     Dates: start: 20001225, end: 20011020
  17. PEGINTERFERON ALFA-2B [Suspect]
     Indication: HEPATITIS C
     Dosage: 1.5 UG/KG DAILY
     Dates: start: 20020817, end: 20030712
  18. DIDANOSINE [Suspect]
     Indication: HIV INFECTION
     Route: 048
     Dates: start: 19941219, end: 19970307
  19. DIDANOSINE [Suspect]
     Dosage: EC
     Route: 048
     Dates: start: 20010721, end: 20040514
  20. DIDANOSINE [Suspect]
     Route: 048
     Dates: start: 19970307, end: 20010721
  21. LAMIVUDINE [Suspect]
     Indication: HIV INFECTION
     Route: 048
     Dates: start: 20040515, end: 20080919
  22. SAQUINAVIR [Suspect]
     Indication: HIV INFECTION
     Route: 048
     Dates: start: 19990619, end: 20000318
  23. SAQUINAVIR [Suspect]
     Route: 048
     Dates: start: 20000524, end: 20001224
  24. FACTOR VIII [Concomitant]
     Indication: HAEMORRHAGE
     Dosage: 9-10 KU/MONTH
     Dates: start: 19991101, end: 20120401
  25. RIBAVIRIN [Concomitant]
     Indication: HEPATITIS C
     Route: 048
     Dates: start: 20020717, end: 20030712
  26. RIBAVIRIN [Concomitant]
  27. ATAZANAVIR [Concomitant]
     Indication: HIV INFECTION
     Route: 048
     Dates: start: 20040425, end: 20080919
  28. TENOFOVIR [Concomitant]
     Indication: HIV INFECTION
     Route: 048
     Dates: start: 20040425, end: 20080919
  29. LEXIVA [Concomitant]
     Indication: HIV INFECTION
     Route: 048
     Dates: start: 20080920
  30. TRUVADA [Concomitant]
     Indication: HIV INFECTION
     Route: 048
     Dates: start: 20080920
  31. ISENTRESS [Concomitant]
     Indication: HIV INFECTION
     Dosage: DAILY
     Route: 048
     Dates: start: 20080920
  32. AMLODIPINE BESILATE [Concomitant]
     Indication: HYPERTENSION
     Dates: start: 20081031, end: 20090105
  33. OLMESARTAN MEDOXOMIL [Concomitant]
     Indication: HYPERTENSION
     Dates: start: 20081031
  34. CROSS EIGHT M [Concomitant]
     Indication: COAGULATION FACTOR VIII LEVEL
     Dates: start: 19970825

REACTIONS (13)
  - Pulmonary hypertension [Not Recovered/Not Resolved]
  - Fibrin degradation products increased [Recovered/Resolved]
  - Hepatic function abnormal [Not Recovered/Not Resolved]
  - Palpitations [Recovering/Resolving]
  - Dizziness [Recovering/Resolving]
  - Nervous system disorder [Recovered/Resolved]
  - Dizziness [Recovered/Resolved]
  - Visual impairment [Recovered/Resolved]
  - Tremor [Recovered/Resolved]
  - Nausea [Recovered/Resolved]
  - Influenza like illness [Recovered/Resolved]
  - Palpitations [Recovering/Resolving]
  - Palpitations [Recovering/Resolving]
